FAERS Safety Report 16570855 (Version 1)
Quarter: 2019Q3

REPORT INFORMATION
  Report Type: Report from Study
  Country: IR (occurrence: IR)
  Receive Date: 20190715
  Receipt Date: 20190715
  Transmission Date: 20191004
  Serious: Yes (Hospitalization, Other)
  Sender: FDA-Public Use
  Company Number: IR-ACCORD-138140

PATIENT
  Sex: Female

DRUGS (2)
  1. CICLOSPORIN [Concomitant]
     Active Substance: CYCLOSPORINE
  2. METHOTREXATE. [Suspect]
     Active Substance: METHOTREXATE
     Indication: RHEUMATOID ARTHRITIS
     Dosage: 30 MG/WEEK INSTEAD OF 15 MG/WEEK

REACTIONS (4)
  - Mucosal ulceration [Unknown]
  - Skin lesion [Unknown]
  - Toxicity to various agents [Unknown]
  - Overdose [Unknown]
